FAERS Safety Report 11313573 (Version 1)
Quarter: 2015Q3

REPORT INFORMATION
  Report Type: Spontaneous
  Country: US (occurrence: None)
  Receive Date: 20150724
  Receipt Date: 20150724
  Transmission Date: 20151125
  Serious: Yes (Hospitalization)
  Sender: FDA-Public Use
  Company Number: None

PATIENT
  Age: 65 Year
  Sex: Male
  Weight: 88.45 kg

DRUGS (9)
  1. COMPAZINE [Concomitant]
     Active Substance: PROCHLORPERAZINE MALEATE
  2. MULTIVITAMIN [Concomitant]
     Active Substance: VITAMINS
  3. ONDANSETRON HCL (ALSO KNOWN AS (ZOFRAN) [Concomitant]
  4. ZEGRID [Concomitant]
  5. OXALIPLATIN. [Concomitant]
     Active Substance: OXALIPLATIN
  6. LEVOTHYROXINE. [Concomitant]
     Active Substance: LEVOTHYROXINE
  7. LORAZEPAM. [Concomitant]
     Active Substance: LORAZEPAM
  8. VITAMIN D3 [Concomitant]
     Active Substance: CHOLECALCIFEROL
  9. CAPECITABINE. [Suspect]
     Active Substance: CAPECITABINE
     Indication: OESOPHAGEAL ADENOCARCINOMA
     Route: 048
     Dates: start: 20150626, end: 20150709

REACTIONS (10)
  - Neutropenia [None]
  - Pyrexia [None]
  - Dehydration [None]
  - Nausea [None]
  - Gastroenteritis viral [None]
  - Abdominal pain [None]
  - Hyponatraemia [None]
  - Diarrhoea [None]
  - Inappropriate antidiuretic hormone secretion [None]
  - Vomiting [None]

NARRATIVE: CASE EVENT DATE: 20150714
